FAERS Safety Report 10029995 (Version 2)
Quarter: 2014Q1

REPORT INFORMATION
  Report Type: Spontaneous
  Country: US (occurrence: US)
  Receive Date: 20140323
  Receipt Date: 20140323
  Transmission Date: 20141002
  Serious: No
  Sender: FDA-Public Use
  Company Number: US-ALLERGAN-1305598US

PATIENT
  Age: 66 Year
  Sex: Female

DRUGS (6)
  1. LATISSE 0.03% [Suspect]
     Indication: GROWTH OF EYELASHES
     Dosage: 2 GTT, QHS
     Route: 061
     Dates: start: 201301, end: 201304
  2. LOSARTAN                           /01121602/ [Concomitant]
     Indication: HYPERTENSION
     Dosage: 75 MG, QD
     Route: 048
     Dates: start: 20130415
  3. LOSARTAN                           /01121602/ [Concomitant]
     Dosage: 50 MG, UNK
     Route: 048
     Dates: end: 20130414
  4. PRAVASTATIN [Concomitant]
     Indication: BLOOD CHOLESTEROL INCREASED
     Dosage: 20 MG, QD
     Route: 048
  5. PRIMIDONE [Concomitant]
     Indication: FAMILIAL TREMOR
     Dosage: 50 MG, BID
     Route: 048
  6. PAIN MEDICINE NOS [Concomitant]
     Indication: ARTHRITIS
     Dosage: UNK, QHS
     Route: 048

REACTIONS (1)
  - Hair texture abnormal [Not Recovered/Not Resolved]
